FAERS Safety Report 12353258 (Version 2)
Quarter: 2016Q2

REPORT INFORMATION
  Report Type: Report from Study
  Country: BR (occurrence: BR)
  Receive Date: 20160510
  Receipt Date: 20160523
  Transmission Date: 20160815
  Serious: Yes (Hospitalization, Other)
  Sender: FDA-Public Use
  Company Number: PHHY2016BR063583

PATIENT
  Age: 20 Year
  Sex: Male
  Weight: 55 kg

DRUGS (4)
  1. ACIDO FOLICO//FOLIC ACID [Concomitant]
     Active Substance: FOLIC ACID
     Indication: SICKLE CELL ANAEMIA
     Dosage: 5 MG, QD
     Route: 048
  2. ASA [Concomitant]
     Active Substance: ASPIRIN
     Indication: CEREBROVASCULAR ACCIDENT
     Dosage: 100 MG, QD
     Route: 048
     Dates: start: 2009
  3. EXJADE [Suspect]
     Active Substance: DEFERASIROX
     Dosage: 2 DF OF 250 MG (10 MG/KG), QD
     Route: 048
     Dates: start: 201603
  4. EXJADE [Suspect]
     Active Substance: DEFERASIROX
     Indication: SICKLE CELL ANAEMIA
     Dosage: 500 MG (10 MG/KG), QD
     Route: 048
     Dates: start: 2009, end: 201601

REACTIONS (13)
  - Nausea [Recovered/Resolved]
  - Sluggishness [Recovered/Resolved]
  - Vomiting [Recovered/Resolved]
  - Visual impairment [Recovered/Resolved]
  - Body temperature abnormal [Recovered/Resolved]
  - Erythema [Recovered/Resolved]
  - Feeling abnormal [Recovered/Resolved]
  - Malaise [Recovered/Resolved]
  - Paraesthesia [Recovered/Resolved]
  - Micturition urgency [Recovered/Resolved]
  - Syncope [Recovered/Resolved]
  - Chills [Recovered/Resolved]
  - Presyncope [Recovered/Resolved]

NARRATIVE: CASE EVENT DATE: 20160502
